FAERS Safety Report 7006738-4 (Version None)
Quarter: 2010Q3

REPORT INFORMATION
  Report Type: 
  Country: None (occurrence: None)
  Receive Date: 20100922
  Receipt Date: 20100914
  Transmission Date: 20110219
  Serious: Yes (Hospitalization, Other)
  Sender: FDA-Public Use
  Company Number: US-BIOGENIDEC-2010BI032037

PATIENT
  Sex: Female

DRUGS (1)
  1. AVONEX [Suspect]
     Indication: MULTIPLE SCLEROSIS
     Route: 030
     Dates: start: 19960610

REACTIONS (11)
  - BLOOD GLUCOSE DECREASED [None]
  - ERYTHEMA [None]
  - FALL [None]
  - FEELING ABNORMAL [None]
  - GASTRIC ULCER HAEMORRHAGE [None]
  - HYPOAESTHESIA [None]
  - INTERVERTEBRAL DISC PROTRUSION [None]
  - LOSS OF CONSCIOUSNESS [None]
  - MUSCLE SPASMS [None]
  - TRANSFUSION [None]
  - URINARY INCONTINENCE [None]
